FAERS Safety Report 8397013-4 (Version None)
Quarter: 2012Q2

REPORT INFORMATION
  Report Type: 
  Country: None (occurrence: None)
  Receive Date: 20120530
  Receipt Date: 20120420
  Transmission Date: 20120825
  Serious: Yes (Death, Hospitalization)
  Sender: FDA-Public Use
  Company Number: US-BAXTER-2012BAX002264

PATIENT
  Sex: Male
  Weight: 122.58 kg

DRUGS (3)
  1. DIANEAL [Suspect]
     Route: 033
     Dates: start: 20120208
  2. DIANEAL [Suspect]
     Route: 033
     Dates: start: 20120208
  3. DIANEAL [Suspect]
     Indication: PERITONEAL DIALYSIS
     Route: 033
     Dates: start: 20120208

REACTIONS (4)
  - CARDIAC ARREST [None]
  - MALAISE [None]
  - HYPERKALAEMIA [None]
  - AZOTAEMIA [None]
